FAERS Safety Report 17052669 (Version 1)
Quarter: 2019Q4

REPORT INFORMATION
  Report Type: Spontaneous
  Country: CN (occurrence: CN)
  Receive Date: 20191120
  Receipt Date: 20191120
  Transmission Date: 20200122
  Serious: Yes (Other)
  Sender: FDA-Public Use
  Company Number: CN-ROCHE-2467941

PATIENT
  Age: 37 Year
  Sex: Female
  Weight: 52 kg

DRUGS (6)
  1. DOCETAXEL. [Suspect]
     Active Substance: DOCETAXEL
     Indication: BREAST CANCER
     Route: 041
     Dates: start: 20191017, end: 20191017
  2. SODIUM CHLORIDE IV [Suspect]
     Active Substance: SODIUM CHLORIDE
     Route: 041
     Dates: start: 20181018, end: 20181018
  3. HERCEPTIN [Suspect]
     Active Substance: TRASTUZUMAB
     Indication: BREAST CANCER
     Dosage: INJECTION POWDER
     Route: 041
     Dates: start: 20191018, end: 20191018
  4. DOCETAXEL. [Suspect]
     Active Substance: DOCETAXEL
     Route: 041
     Dates: start: 20191017, end: 20191017
  5. SODIUM CHLORIDE IV [Suspect]
     Active Substance: SODIUM CHLORIDE
     Route: 041
     Dates: start: 20191017, end: 20191017
  6. SODIUM CHLORIDE IV [Suspect]
     Active Substance: SODIUM CHLORIDE
     Indication: BREAST CANCER
     Route: 041
     Dates: start: 20181017, end: 20181017

REACTIONS (5)
  - Nausea [Recovering/Resolving]
  - Vomiting [Recovering/Resolving]
  - Bone marrow failure [Recovering/Resolving]
  - Decreased appetite [Recovering/Resolving]
  - Asthenia [Recovering/Resolving]

NARRATIVE: CASE EVENT DATE: 20191018
